FAERS Safety Report 12672992 (Version 2)
Quarter: 2016Q3

REPORT INFORMATION
  Report Type: Spontaneous
  Country: GR (occurrence: GR)
  Receive Date: 20160822
  Receipt Date: 20160920
  Transmission Date: 20161109
  Serious: Yes (Other)
  Sender: FDA-Public Use
  Company Number: GR-PFIZER INC-2016393874

PATIENT
  Age: 87 Year
  Sex: Male

DRUGS (8)
  1. ANGORON [Concomitant]
     Active Substance: AMIODARONE HYDROCHLORIDE
     Dosage: UNK
  2. VITAMIN D3 [Concomitant]
     Active Substance: CHOLECALCIFEROL
     Dosage: UNK
  3. TRIATEC [Concomitant]
     Active Substance: RAMIPRIL
     Dosage: 5 MG, UNK
  4. KLEXANE [Concomitant]
     Active Substance: ENOXAPARIN
     Dosage: 0.4 UNK, UNK
  5. TRAMAL [Concomitant]
     Active Substance: TRAMADOL
     Dosage: UNK
  6. DIVOL [Concomitant]
     Dosage: UNK
  7. MEDROL [Suspect]
     Active Substance: METHYLPREDNISOLONE
     Dosage: 4 MG, 2X/DAY (AT NOON)
     Route: 048
     Dates: start: 201607, end: 201608
  8. MEDROL [Suspect]
     Active Substance: METHYLPREDNISOLONE
     Dosage: 4 MG, 1X/DAY
     Route: 048
     Dates: start: 201608

REACTIONS (2)
  - Urinary retention [Recovered/Resolved]
  - Arrhythmia [Recovered/Resolved]

NARRATIVE: CASE EVENT DATE: 20160814
